FAERS Safety Report 7316485-7 (Version None)
Quarter: 2011Q1

REPORT INFORMATION
  Report Type: 
  Country: None (occurrence: None)
  Receive Date: 20110226
  Receipt Date: 20110225
  Transmission Date: 20110831
  Serious: Yes (Other)
  Sender: FDA-Public Use
  Company Number: DE-ABBOTT-10P-062-0687729-00

PATIENT
  Sex: Female

DRUGS (4)
  1. ACEMETACIN [Concomitant]
     Indication: RHEUMATOID ARTHRITIS
     Dosage: AS NEEDED
  2. HUMIRA [Suspect]
     Route: 058
     Dates: start: 20110107, end: 20110204
  3. ANTIHYPERTENSIVES [Concomitant]
     Indication: HYPERTENSION
  4. HUMIRA [Suspect]
     Indication: RHEUMATOID ARTHRITIS
     Route: 058
     Dates: start: 20090618, end: 20101028

REACTIONS (5)
  - DRUG INEFFECTIVE [None]
  - FOOT DEFORMITY [None]
  - INFLAMMATION [None]
  - BUNION [None]
  - RHEUMATOID ARTHRITIS [None]
